FAERS Safety Report 6200711-1 (Version None)
Quarter: 2009Q2

REPORT INFORMATION
  Report Type: 
  Country: None (occurrence: None)
  Receive Date: 20090522
  Receipt Date: 20080611
  Transmission Date: 20091009
  Serious: Yes (Hospitalization)
  Sender: FDA-Public Use
  Company Number: US-ALEXION-A200800107

PATIENT
  Sex: Female

DRUGS (29)
  1. SOLIRIS [Suspect]
     Indication: PAROXYSMAL NOCTURNAL HAEMOGLOBINURIA
     Dosage: 600 MG, SINGLE
     Route: 042
     Dates: start: 20071004, end: 20071004
  2. SOLIRIS [Suspect]
     Dosage: 600 MG, SINGLE
     Route: 042
     Dates: start: 20071011, end: 20071011
  3. SOLIRIS [Suspect]
     Dosage: 600 MG, SINGLE
     Route: 042
     Dates: start: 20071018, end: 20071018
  4. SOLIRIS [Suspect]
     Dosage: 600 MG, SINGLE
     Route: 042
     Dates: start: 20071025, end: 20071025
  5. SOLIRIS [Suspect]
     Dosage: 900 MG, SINGLE
     Route: 042
     Dates: start: 20071101, end: 20071101
  6. SOLIRIS [Suspect]
     Dosage: 900 MG, SINGLE
     Route: 042
     Dates: start: 20071115, end: 20071115
  7. SOLIRIS [Suspect]
     Dosage: 900 MG, SINGLE
     Route: 042
     Dates: start: 20071129, end: 20071129
  8. SOLIRIS [Suspect]
     Dosage: 900 MG, SINGLE
     Route: 042
     Dates: start: 20071213, end: 20071213
  9. SOLIRIS [Suspect]
     Dosage: 900 MG, SINGLE
     Route: 042
     Dates: start: 20071227, end: 20071227
  10. SOLIRIS [Suspect]
     Dosage: 900 MG, SINGLE
     Route: 042
     Dates: start: 20080110, end: 20080110
  11. SOLIRIS [Suspect]
     Dosage: 900 MG, SINGLE
     Route: 042
     Dates: start: 20080124, end: 20080124
  12. SOLIRIS [Suspect]
     Dosage: 900 MG, SINGLE
     Route: 042
     Dates: start: 20080207, end: 20080207
  13. SOLIRIS [Suspect]
     Dosage: 900 MG, SINGLE
     Route: 042
     Dates: start: 20080221, end: 20080221
  14. SOLIRIS [Suspect]
     Dosage: 900 MG, SINGLE
     Route: 042
     Dates: start: 20080306, end: 20080306
  15. SOLIRIS [Suspect]
     Dosage: 900 MG, SINGLE
     Route: 042
     Dates: start: 20080322, end: 20080322
  16. SOLIRIS [Suspect]
     Dosage: 900 MG, SINGLE
     Route: 042
     Dates: start: 20080403, end: 20080403
  17. SOLIRIS [Suspect]
     Dosage: 600 MG, SINGLE
     Route: 042
     Dates: start: 20080503
  18. GLIMEPIRIDE [Concomitant]
     Dosage: UNK, PRN
     Route: 048
  19. EXJADE [Concomitant]
     Dosage: UNK, QD
     Route: 048
     Dates: start: 20080218, end: 20080324
  20. VITAMIN C                          /00008001/ [Concomitant]
     Dosage: UNK, QD
     Route: 048
  21. CALCIUM D [Concomitant]
     Dosage: UNK, QD
     Route: 048
  22. NORVASC [Concomitant]
     Dosage: UNK, QD
     Route: 048
  23. LISINOPRIL [Concomitant]
     Dosage: UNK, QD
     Route: 048
  24. MULTIVITAMIN                       /00831701/ [Concomitant]
     Dosage: UNK, QD
     Route: 048
  25. PREDNISONE [Concomitant]
     Dosage: 2.5 MG, QD
     Route: 048
  26. ATENOLOL [Concomitant]
     Indication: HYPERTENSION
     Dosage: UNK, QD
     Route: 048
  27. ARANESP [Concomitant]
     Dosage: 300 MG, EVERY OTHER WEEKLY
  28. SIMVASTATIN [Concomitant]
     Route: 048
  29. BLOOD TRANSFUSION, AUXILIARY PRODUCTS [Concomitant]
     Dosage: UNK, SINGLE
     Dates: start: 20080415, end: 20080415

REACTIONS (2)
  - SPLENOMEGALY [None]
  - TRANSFUSION REACTION [None]
